FAERS Safety Report 18432626 (Version 4)
Quarter: 2021Q1

REPORT INFORMATION
  Report Type: Spontaneous
  Country: US (occurrence: US)
  Receive Date: 20201027
  Receipt Date: 20210109
  Transmission Date: 20210419
  Serious: Yes (Other)
  Sender: FDA-Public Use
  Company Number: NVSC2020US287924

PATIENT
  Age: 57 Year

DRUGS (2)
  1. COSENTYX [Suspect]
     Active Substance: SECUKINUMAB
     Dosage: 150 MG, QW (LOADING DOSES COMPLETED NEXT DOSE MAINTAINED Q 4 WEEKS)
     Route: 058
     Dates: start: 20201011
  2. COSENTYX [Suspect]
     Active Substance: SECUKINUMAB
     Indication: PSORIATIC ARTHROPATHY
     Dosage: 150 MG, QW
     Route: 058
     Dates: start: 20201004

REACTIONS (2)
  - Kidney infection [Unknown]
  - Arthropathy [Unknown]
